FAERS Safety Report 15706883 (Version 1)
Quarter: 2018Q4

REPORT INFORMATION
  Report Type: Spontaneous
  Country: US (occurrence: US)
  Receive Date: 20181210
  Receipt Date: 20181210
  Transmission Date: 20190205
  Serious: No
  Sender: FDA-Public Use
  Company Number: US-GLAXOSMITHKLINE-US2018216805

PATIENT
  Sex: Female

DRUGS (2)
  1. ROPINIROLE HYDROCHLORIDE TABLET [Suspect]
     Active Substance: ROPINIROLE HYDROCHLORIDE
     Dosage: 0.25 MG, QD
     Route: 048
     Dates: start: 201803, end: 201811
  2. ATENOLOL. [Concomitant]
     Active Substance: ATENOLOL

REACTIONS (6)
  - Skin odour abnormal [Not Recovered/Not Resolved]
  - Condition aggravated [Unknown]
  - Dysgeusia [Not Recovered/Not Resolved]
  - Nausea [Not Recovered/Not Resolved]
  - Urine odour abnormal [Not Recovered/Not Resolved]
  - Parosmia [Not Recovered/Not Resolved]
